FAERS Safety Report 5965586-4 (Version None)
Quarter: 2008Q4

REPORT INFORMATION
  Report Type: 
  Country: None (occurrence: None)
  Receive Date: 20081125
  Receipt Date: 20081121
  Transmission Date: 20090506
  Serious: Yes (Hospitalization)
  Sender: FDA-Public Use
  Company Number: US-BRISTOL-MYERS SQUIBB COMPANY-14416598

PATIENT

DRUGS (1)
  1. ABILIFY [Suspect]

REACTIONS (1)
  - CONDITION AGGRAVATED [None]
